FAERS Safety Report 15004292 (Version 1)
Quarter: 2018Q2

REPORT INFORMATION
  Report Type: Spontaneous
  Country: US (occurrence: US)
  Receive Date: 20180524
  Receipt Date: 20180524
  Transmission Date: 20180711
  Serious: Yes (Other)
  Sender: FDA-Public Use
  Company Number: None

PATIENT
  Age: 54 Year
  Sex: Female
  Weight: 85.5 kg

DRUGS (3)
  1. MYRBETRIQ [Suspect]
     Active Substance: MIRABEGRON
     Indication: URINARY INCONTINENCE
     Dosage: ?          QUANTITY:1 DF DOSAGE FORM;?
     Route: 048
     Dates: start: 20180523
  2. ALCOHOL. [Concomitant]
     Active Substance: ALCOHOL
  3. SAM-E (S-ADENOSYL-L-METHIONINE) [Suspect]
     Active Substance: ADEMETIONINE
     Indication: MENTAL IMPAIRMENT
     Dosage: ?          QUANTITY:1 DF DOSAGE FORM;?
     Route: 048
     Dates: start: 20180301, end: 20180524

REACTIONS (2)
  - Depression [None]
  - Mental status changes [None]

NARRATIVE: CASE EVENT DATE: 20180523
